FAERS Safety Report 9126776 (Version 2)
Quarter: 2017Q4

REPORT INFORMATION
  Report Type: Spontaneous
  Country: US (occurrence: US)
  Receive Date: 20130122
  Receipt Date: 20171212
  Transmission Date: 20180321
  Serious: Yes (Other)
  Sender: FDA-Public Use
  Company Number: US-PFIZER INC-2013021890

PATIENT
  Age: 61 Year
  Sex: Female
  Weight: 99 kg

DRUGS (3)
  1. GABAPENTIN. [Concomitant]
     Active Substance: GABAPENTIN
     Indication: PAIN
     Dosage: 300 MG, 3X/DAY
     Route: 048
  2. CELEBREX [Suspect]
     Active Substance: CELECOXIB
     Indication: SPONDYLITIS
  3. CELEBREX [Suspect]
     Active Substance: CELECOXIB
     Indication: ARTHRITIS
     Dosage: 200 MG, UNK
     Dates: start: 2007

REACTIONS (7)
  - Blood glucose increased [Unknown]
  - Ocular vascular disorder [Unknown]
  - Myasthenia gravis [Unknown]
  - Blindness [Not Recovered/Not Resolved]
  - Incorrect drug administration duration [Unknown]
  - Blood pressure increased [Unknown]
  - Renal failure [Unknown]
